FAERS Safety Report 6702770-6 (Version None)
Quarter: 2010Q2

REPORT INFORMATION
  Report Type: 
  Country: None (occurrence: None)
  Receive Date: 20100429
  Receipt Date: 20100416
  Transmission Date: 20101027
  Serious: Yes (Other)
  Sender: FDA-Public Use
  Company Number: US-ELI_LILLY_AND_COMPANY-US201004005511

PATIENT
  Sex: Female

DRUGS (8)
  1. FORTEO [Suspect]
     Indication: OSTEOPOROSIS
     Dosage: 20 UG, DAILY (1/D)
     Dates: start: 20090501
  2. PERCOCET [Concomitant]
  3. LIPITOR [Concomitant]
  4. CORTIZONE [Concomitant]
  5. ZANTAC [Concomitant]
     Dosage: 1 D/F, EACH EVENING
  6. OMEPRAZOLE [Concomitant]
     Dosage: 1 D/F, EACH MORNING
  7. ATIVAN [Concomitant]
  8. SUDAFED 12 HOUR [Concomitant]

REACTIONS (4)
  - HEART RATE ABNORMAL [None]
  - HEART RATE DECREASED [None]
  - HEART RATE INCREASED [None]
  - ILL-DEFINED DISORDER [None]
